FAERS Safety Report 8782326 (Version 1)
Quarter: 2012Q4

REPORT INFORMATION
  Report Type: Report from Study
  Country: US (occurrence: US)
  Receive Date: 20120913
  Receipt Date: 20120913
  Transmission Date: 20130627
  Serious: No
  Sender: FDA-Public Use
  Company Number: US-VERTEX PHARMACEUTICAL INC.-AE-2012-010416

PATIENT
  Age: 59 Year
  Sex: Female
  Weight: 58.18 kg

DRUGS (11)
  1. INCIVEK [Suspect]
     Indication: HEPATITIS C
     Route: 048
  2. RIBAVIRIN [Concomitant]
     Indication: HEPATITIS C
  3. PEGASYS PROCLICK [Concomitant]
     Indication: HEPATITIS C
     Route: 058
  4. AMBIEN [Concomitant]
  5. PAXIL [Concomitant]
  6. IBUPROFEN [Concomitant]
  7. ESTRADIOL [Concomitant]
  8. MICARDIS [Concomitant]
  9. VITAMIN D [Concomitant]
  10. PROGESTERONE [Concomitant]
  11. ENSURE LIQ CHOCOLAT [Concomitant]

REACTIONS (4)
  - Headache [Unknown]
  - Diarrhoea [Unknown]
  - Vomiting [Unknown]
  - Nausea [Unknown]
